FAERS Safety Report 6289189-X (Version None)
Quarter: 2009Q3

REPORT INFORMATION
  Report Type: 
  Country: None (occurrence: None)
  Receive Date: 20090728
  Receipt Date: 20090716
  Transmission Date: 20100115
  Serious: Yes (Other)
  Sender: FDA-Public Use
  Company Number: 2009AP002917

PATIENT
  Age: 2 Year
  Sex: Female

DRUGS (1)
  1. OMEPRAZOLE [Suspect]
     Indication: PROPHYLAXIS
     Dosage: 20 MG; TRMA
     Dates: start: 20090604, end: 20090618

REACTIONS (4)
  - DIARRHOEA [None]
  - DRUG EXPOSURE VIA BREAST MILK [None]
  - FAECES DISCOLOURED [None]
  - INTOXICATION BY BREAST FEEDING [None]
